FAERS Safety Report 9666240 (Version 4)
Quarter: 2014Q4

REPORT INFORMATION
  Report Type: Spontaneous
  Country: CA (occurrence: None)
  Receive Date: 20131031
  Receipt Date: 20141017
  Transmission Date: 20150529
  Serious: Yes (Death)
  Sender: FDA-Public Use
  Company Number: 1713747-2013-99968

PATIENT
  Sex: Male

DRUGS (4)
  1. FRESENIUS CONCENTRATES [Concomitant]
  2. FRESENIUS BLOOD TUBING [Concomitant]
  3. 0.9% SODIUM CHLORIDE [Suspect]
     Active Substance: SODIUM CHLORIDE
     Indication: HAEMODIALYSIS
     Dates: start: 20131001
  4. FRESENIUS K @HOME [Concomitant]

REACTIONS (2)
  - Product quality issue [None]
  - Device issue [None]

NARRATIVE: CASE EVENT DATE: 20131001
